FAERS Safety Report 15609919 (Version 1)
Quarter: 2018Q4

REPORT INFORMATION
  Report Type: Spontaneous
  Country: SE (occurrence: SE)
  Receive Date: 20181113
  Receipt Date: 20181113
  Transmission Date: 20190205
  Serious: Yes (Other)
  Sender: FDA-Public Use
  Company Number: SE-ACCORD-092057

PATIENT
  Age: 45 Year
  Sex: Female

DRUGS (6)
  1. FOLACIN [Concomitant]
  2. OXIS [Concomitant]
     Active Substance: FORMOTEROL FUMARATE
  3. LITHIUM. [Concomitant]
     Active Substance: LITHIUM
  4. COSENTYX [Concomitant]
     Active Substance: SECUKINUMAB
  5. BUFOMIX EASYHALER [Concomitant]
     Active Substance: BUDESONIDE\FORMOTEROL FUMARATE
  6. METHOTREXATE. [Suspect]
     Active Substance: METHOTREXATE
     Indication: PULMONARY SARCOIDOSIS
     Route: 048
     Dates: start: 20180316, end: 20180316

REACTIONS (3)
  - Rash erythematous [Recovered/Resolved]
  - Peripheral swelling [Recovered/Resolved]
  - Off label use [Unknown]

NARRATIVE: CASE EVENT DATE: 20180322
